FAERS Safety Report 7152021-6 (Version None)
Quarter: 2010Q4

REPORT INFORMATION
  Report Type: 
  Country: None (occurrence: None)
  Receive Date: 20101123
  Receipt Date: 20101108
  Transmission Date: 20110411
  Serious: Yes (Hospitalization)
  Sender: FDA-Public Use
  Company Number: DSA_44298_2010

PATIENT
  Age: 84 Year
  Sex: Male

DRUGS (11)
  1. ENALAPRIL MALEATE [Suspect]
     Indication: HYPERTENSION
     Dosage: (5 MG QD, DF ORAL)
     Route: 048
     Dates: start: 20090101
  2. DILTIAZEM HCL [Suspect]
     Indication: HYPERTENSION
     Dosage: (60 MG, DF ORAL)
     Route: 048
     Dates: start: 20090101
  3. NITRODERM [Suspect]
     Indication: ISCHAEMIC CARDIOMYOPATHY
     Dosage: (10 MG, DF TOPICAL)
     Route: 061
     Dates: start: 20090101
  4. ZYLORIC [Concomitant]
  5. CORDARONE [Concomitant]
  6. ASPIRIN [Concomitant]
  7. CALCIUM FOLINATE [Concomitant]
  8. OMEPRAZOLE [Concomitant]
  9. GARDENAL /00023201/ [Concomitant]
  10. SPIRIVA [Concomitant]
  11. SERETIDE [Concomitant]

REACTIONS (4)
  - BLOOD CREATININE INCREASED [None]
  - BLOOD GLUCOSE DECREASED [None]
  - HAEMOGLOBIN DECREASED [None]
  - PRESYNCOPE [None]
